FAERS Safety Report 4404740-X (Version None)
Quarter: 2004Q3

REPORT INFORMATION
  Report Type: 
  Country: None (occurrence: None)
  Receive Date: 20040715
  Receipt Date: 20040701
  Transmission Date: 20050211
  Serious: No
  Sender: FDA-Public Use
  Company Number: 206834

PATIENT
  Age: 51 Year
  Sex: Male
  Weight: 91.6 kg

DRUGS (5)
  1. RITUXAN [Suspect]
     Indication: WALDENSTROM'S MACROGLOBULINAEMIA
     Dosage: 375 MG/M2, Q2W, INTRAVENOUS
     Route: 042
     Dates: start: 20040408, end: 20040517
  2. MESNA [Concomitant]
  3. CYTOXAN [Concomitant]
  4. VINCRISTINE [Concomitant]
  5. PREDNISONE [Concomitant]

REACTIONS (4)
  - BRONCHIECTASIS [None]
  - BRONCHIOLITIS [None]
  - LABORATORY TEST ABNORMAL [None]
  - RHINORRHOEA [None]
